FAERS Safety Report 9854103 (Version 1)
Quarter: 2014Q1

REPORT INFORMATION
  Report Type: Spontaneous
  Country: FR (occurrence: FR)
  Receive Date: 20140129
  Receipt Date: 20140129
  Transmission Date: 20141002
  Serious: Yes (Disabling, Congenital Anomaly)
  Sender: FDA-Public Use
  Company Number: FR-UCBSA-110222

PATIENT
  Sex: Female

DRUGS (2)
  1. VIMPAT [Suspect]
     Dosage: UNKNOWN DOSE
     Route: 064
     Dates: end: 201308
  2. DEPAKINE [Suspect]
     Dosage: UNKNOWN DOSE
     Route: 064
     Dates: end: 201308

REACTIONS (5)
  - Dysmorphism [Not Recovered/Not Resolved]
  - Deafness unilateral [Not Recovered/Not Resolved]
  - Patent ductus arteriosus [Recovered/Resolved]
  - Renal fusion anomaly [Unknown]
  - Foetal exposure during pregnancy [Recovered/Resolved]
